FAERS Safety Report 9029875 (Version 2)
Quarter: 2013Q1

REPORT INFORMATION
  Report Type: Spontaneous
  Country: ES (occurrence: ES)
  Receive Date: 20130124
  Receipt Date: 20130129
  Transmission Date: 20140127
  Serious: Yes (Other)
  Sender: FDA-Public Use
  Company Number: ES-BAYER-2013-004033

PATIENT
  Age: 50 Year
  Sex: Female

DRUGS (3)
  1. ULTRAVIST [Suspect]
     Indication: COMPUTERISED TOMOGRAM ABDOMEN
     Dosage: 120 ML, ONCE
     Route: 042
     Dates: start: 20121219, end: 20121219
  2. GASTROGRAFIN [Suspect]
     Dosage: UNK
     Route: 048
     Dates: start: 20121219, end: 20121219
  3. LOSARTAN POTASSIUM W/HYDROCHLOROTHIAZIDE [Concomitant]
     Indication: HYPERTENSION
     Dosage: UNK UNK, BID
     Route: 048
     Dates: start: 20101210

REACTIONS (4)
  - Contrast media allergy [Recovered/Resolved]
  - Rash [Recovered/Resolved]
  - Eyelid oedema [Recovered/Resolved]
  - General physical health deterioration [Recovered/Resolved]
